FAERS Safety Report 8357236-7 (Version None)
Quarter: 2012Q2

REPORT INFORMATION
  Report Type: 
  Country: None (occurrence: None)
  Receive Date: 20120514
  Receipt Date: 20120507
  Transmission Date: 20120825
  Serious: Yes (Other)
  Sender: FDA-Public Use
  Company Number: KR-ROCHE-1066630

PATIENT
  Age: 41 Year
  Sex: Female

DRUGS (1)
  1. BONIVA [Suspect]
     Indication: PRODUCT USED FOR UNKNOWN INDICATION

REACTIONS (5)
  - PAIN [None]
  - SWELLING [None]
  - PAIN IN EXTREMITY [None]
  - INJECTION SITE SWELLING [None]
  - ERYTHEMA [None]
